FAERS Safety Report 18880879 (Version 1)
Quarter: 2021Q1

REPORT INFORMATION
  Report Type: Spontaneous
  Country: US (occurrence: US)
  Receive Date: 20210211
  Receipt Date: 20210211
  Transmission Date: 20210420
  Serious: Yes (Other)
  Sender: FDA-Public Use
  Company Number: US-GLAXOSMITHKLINE-US2021GSK037543

PATIENT
  Sex: Male

DRUGS (5)
  1. ZANTAC [Suspect]
     Active Substance: RANITIDINE HYDROCHLORIDE
     Indication: MULTIPLE ALLERGIES
     Dosage: UNK UNK, QD
     Route: 065
     Dates: start: 2012, end: 2019
  2. ZANTAC [Suspect]
     Active Substance: RANITIDINE HYDROCHLORIDE
     Indication: MULTIPLE ALLERGIES
     Dosage: UNK UNK, QD
     Route: 065
     Dates: start: 2012, end: 2019
  3. RANITIDINE CAPSULE [Suspect]
     Active Substance: RANITIDINE
     Indication: MULTIPLE ALLERGIES
     Dosage: UNK UNK, QD
     Route: 065
     Dates: start: 2012, end: 2019
  4. RANITIDINE. [Suspect]
     Active Substance: RANITIDINE
     Indication: MULTIPLE ALLERGIES
     Dosage: UNK, QD
     Route: 065
     Dates: start: 2012, end: 2019
  5. ZANTAC [Suspect]
     Active Substance: RANITIDINE HYDROCHLORIDE
     Indication: MULTIPLE ALLERGIES
     Dosage: UNK UNK, QD
     Route: 065
     Dates: start: 2012, end: 2019

REACTIONS (1)
  - Haematological malignancy [Unknown]
